FAERS Safety Report 20042252 (Version 1)
Quarter: 2021Q4

REPORT INFORMATION
  Report Type: Spontaneous
  Country: ZA (occurrence: ZA)
  Receive Date: 20211108
  Receipt Date: 20211108
  Transmission Date: 20220303
  Serious: Yes (Hospitalization)
  Sender: FDA-Public Use
  Company Number: ZA-CIPLA (EU) LIMITED-2021ZA07284

PATIENT

DRUGS (5)
  1. PACLITAXEL [Suspect]
     Active Substance: PACLITAXEL
     Indication: Vulval cancer recurrent
     Dosage: 100 MG, UNK
     Route: 042
  2. PACLITAXEL [Suspect]
     Active Substance: PACLITAXEL
     Dosage: 30 MG, UNK
     Route: 042
  3. PACLITAXEL [Suspect]
     Active Substance: PACLITAXEL
     Dosage: UNK, 1ST CYCLE
     Route: 065
     Dates: start: 20210618
  4. PACLITAXEL [Suspect]
     Active Substance: PACLITAXEL
     Dosage: 175 MG/M2, UNK
     Route: 042
     Dates: start: 20210712, end: 20210712
  5. CARBOPLATIN [Suspect]
     Active Substance: CARBOPLATIN
     Indication: Product used for unknown indication
     Dosage: UNK, 1ST CYCLE
     Route: 065
     Dates: start: 20210618

REACTIONS (4)
  - Chest pain [Recovered/Resolved]
  - Dyspnoea [Recovered/Resolved]
  - Oxygen saturation decreased [Recovered/Resolved]
  - Blood pressure decreased [Recovered/Resolved]

NARRATIVE: CASE EVENT DATE: 20210712
